FAERS Safety Report 7515045-2 (Version None)
Quarter: 2011Q2

REPORT INFORMATION
  Report Type: 
  Country: None (occurrence: None)
  Receive Date: 20110601
  Receipt Date: 20110517
  Transmission Date: 20111010
  Serious: Yes (Other)
  Sender: FDA-Public Use
  Company Number: FR-JNJFOC-20110302800

PATIENT
  Sex: Female

DRUGS (3)
  1. HYDROCORTISONE HEMISUCCINATE [Concomitant]
     Indication: PREMEDICATION
     Route: 042
  2. DEXCHLORPHENIRAMINE MALEATE [Concomitant]
     Indication: PREMEDICATION
     Route: 042
  3. REMICADE [Suspect]
     Indication: CROHN'S DISEASE
     Route: 042
     Dates: start: 20060301, end: 20070401

REACTIONS (2)
  - ANAPHYLACTIC SHOCK [None]
  - INFUSION RELATED REACTION [None]
